FAERS Safety Report 10376788 (Version 1)
Quarter: 2014Q3

REPORT INFORMATION
  Report Type: Spontaneous
  Country: US (occurrence: US)
  Receive Date: 20140811
  Receipt Date: 20140811
  Transmission Date: 20150326
  Serious: Yes (Hospitalization, Disabling, Other)
  Sender: FDA-Public Use
  Company Number: US-ABBVIE-14P-163-1269046-00

PATIENT
  Age: 67 Year
  Sex: Male

DRUGS (3)
  1. TESTOPEL [Concomitant]
     Active Substance: TESTOSTERONE
     Indication: PRODUCT USED FOR UNKNOWN INDICATION
     Dates: start: 201108, end: 201202
  2. ANDROGEL [Suspect]
     Active Substance: TESTOSTERONE
     Dates: start: 201208, end: 201209
  3. ANDROGEL [Suspect]
     Active Substance: TESTOSTERONE
     Indication: BLOOD TESTOSTERONE DECREASED
     Dates: start: 201001, end: 201112

REACTIONS (9)
  - Anhedonia [Unknown]
  - Economic problem [Unknown]
  - Impaired work ability [Unknown]
  - Vascular graft [Unknown]
  - Emotional distress [Unknown]
  - Injury [Unknown]
  - Disability [Unknown]
  - Anxiety [Unknown]
  - Pain [Unknown]
